FAERS Safety Report 4751475-X (Version None)
Quarter: 2005Q3

REPORT INFORMATION
  Report Type: 
  Country: None (occurrence: None)
  Receive Date: 20050822
  Receipt Date: 20050809
  Transmission Date: 20060218
  Serious: Yes (Hospitalization)
  Sender: FDA-Public Use
  Company Number: 2005108242

PATIENT
  Age: 40 Year
  Sex: Female

DRUGS (9)
  1. AZITHROMYCIN [Suspect]
     Indication: COUGH
     Dosage: ORAL
     Route: 048
     Dates: start: 20050706
  2. SPARA (SPARFLOXACIN) [Concomitant]
  3. LOXONIN (LOXOPROFEN SODIUM) [Concomitant]
  4. POLARAMINE [Concomitant]
  5. MEDICON (DEXTROMETHORPHAN HYDROBROMIDE) [Concomitant]
  6. CODEINE PHOSPHATE (CODEINE PHOSPHATE) [Concomitant]
  7. HUSTAGIN (PLANTAGO MAJOR) [Concomitant]
  8. PROCATEROL HCL [Concomitant]
  9. PHENOBARBITAL TAB [Concomitant]

REACTIONS (2)
  - FACIAL PALSY [None]
  - HERPES ZOSTER OTICUS [None]
